FAERS Safety Report 5846322-9 (Version None)
Quarter: 2008Q3

REPORT INFORMATION
  Report Type: 
  Country: None (occurrence: None)
  Receive Date: 20080815
  Receipt Date: 20080801
  Transmission Date: 20090109
  Serious: No
  Sender: FDA-Public Use
  Company Number: US-BAYER-200830005NA

PATIENT
  Age: 27 Year
  Sex: Female
  Weight: 61 kg

DRUGS (2)
  1. MAGNEVIST [Suspect]
     Indication: NUCLEAR MAGNETIC RESONANCE IMAGING
     Dosage: TOTAL DAILY DOSE: 12 ML  UNIT DOSE: 50 ML
     Route: 042
     Dates: start: 20080801, end: 20080801
  2. ROBINUL [Concomitant]

REACTIONS (1)
  - GENERALISED ERYTHEMA [None]
